FAERS Safety Report 8206010-0 (Version None)
Quarter: 2012Q1

REPORT INFORMATION
  Report Type: 
  Country: None (occurrence: None)
  Receive Date: 20120313
  Receipt Date: 20120306
  Transmission Date: 20120608
  Serious: Yes (Hospitalization)
  Sender: FDA-Public Use
  Company Number: AU-B.I. PHARMACEUTICALS,INC./RIDGEFIELD-2012-AU-00451AU

PATIENT
  Sex: Male
  Weight: 112 kg

DRUGS (1)
  1. PRADAXA [Suspect]
     Indication: CEREBROVASCULAR ACCIDENT PROPHYLAXIS
     Dosage: 300 MG
     Dates: start: 20110522, end: 20120212

REACTIONS (5)
  - HOSPITALISATION [None]
  - ABDOMINAL DISCOMFORT [None]
  - NAUSEA [None]
  - DECREASED APPETITE [None]
  - DYSGEUSIA [None]
